FAERS Safety Report 12122217 (Version 2)
Quarter: 2016Q1

REPORT INFORMATION
  Report Type: Spontaneous
  Country: US (occurrence: US)
  Receive Date: 20160226
  Receipt Date: 20160307
  Transmission Date: 20160526
  Serious: Yes (Other)
  Sender: FDA-Public Use
  Company Number: US-MYLANLABS-2016M1006334

PATIENT

DRUGS (1)
  1. CALCITONIN SALMON. [Suspect]
     Active Substance: CALCITONIN SALMON
     Indication: OSTEOPOROSIS
     Dosage: UNK
     Route: 045

REACTIONS (4)
  - Hypercoagulation [Unknown]
  - Flushing [Unknown]
  - Epistaxis [Unknown]
  - Waldenstrom^s macroglobulinaemia [Recovering/Resolving]

NARRATIVE: CASE EVENT DATE: 2012
